FAERS Safety Report 11220459 (Version 2)
Quarter: 2015Q2

REPORT INFORMATION
  Report Type: Spontaneous
  Country: US (occurrence: US)
  Receive Date: 20150625
  Receipt Date: 20150626
  Transmission Date: 20150821
  Serious: Yes (Hospitalization, Other)
  Sender: FDA-Public Use
  Company Number: US-ALEMBIC PHARMACEUTICALS LIMITED-2015SCAL000329

PATIENT
  Age: 37 Year
  Sex: Male

DRUGS (2)
  1. METRONIDAZOLE. [Suspect]
     Active Substance: METRONIDAZOLE
     Indication: CLOSTRIDIUM DIFFICILE INFECTION
     Dosage: UNK
  2. METRONIDAZOLE. [Suspect]
     Active Substance: METRONIDAZOLE
     Indication: STAPHYLOCOCCAL BACTERAEMIA

REACTIONS (5)
  - Eye movement disorder [Recovering/Resolving]
  - Leukoencephalopathy [Recovering/Resolving]
  - Hemiplegia [Recovering/Resolving]
  - Toxicity to various agents [Recovering/Resolving]
  - Aphasia [Recovering/Resolving]
